FAERS Safety Report 9329387 (Version 1)
Quarter: 2013Q2

REPORT INFORMATION
  Report Type: Spontaneous
  Country: US (occurrence: US)
  Receive Date: 20130604
  Receipt Date: 20130604
  Transmission Date: 20140414
  Serious: No
  Sender: FDA-Public Use
  Company Number: US-SANOFI-AVENTIS-2012SA091603

PATIENT
  Age: 72 Year
  Sex: Male
  Weight: 115 kg

DRUGS (7)
  1. LANTUS SOLOSTAR [Suspect]
     Indication: TYPE 2 DIABETES MELLITUS
     Dosage: START DATE: FROM MORE THAN SIX MONTHS
     Route: 058
  2. SOLOSTAR [Suspect]
     Indication: TYPE 2 DIABETES MELLITUS
     Dosage: START DATE: FROM MORE THAN SIX MONTHS
  3. ASPIRIN [Concomitant]
     Indication: ANTICOAGULANT THERAPY
     Dates: start: 20130301
  4. NUREX-TF [Concomitant]
     Dates: start: 20130320
  5. ZETIA [Concomitant]
     Dates: start: 20130301
  6. PLAVIX [Concomitant]
     Dates: start: 20120301
  7. METFORMIN [Concomitant]
     Indication: DIABETES MELLITUS

REACTIONS (2)
  - Feeling abnormal [Unknown]
  - Glycosylated haemoglobin increased [Unknown]
